FAERS Safety Report 15233259 (Version 5)
Quarter: 2018Q4

REPORT INFORMATION
  Report Type: Spontaneous
  Country: LV (occurrence: LV)
  Receive Date: 20180802
  Receipt Date: 20181211
  Transmission Date: 20190204
  Serious: Yes (Other)
  Sender: FDA-Public Use
  Company Number: LV-PFIZER INC-2018310691

PATIENT
  Age: 54 Year
  Sex: Male

DRUGS (4)
  1. IRINOTECAN HCL [Suspect]
     Active Substance: IRINOTECAN HYDROCHLORIDE
     Dosage: 500 MG, CYCLIC (D1 EVERY 3 WEEKS FROM THIRD CYCLE FOR 6 CYCLES)
     Route: 042
     Dates: end: 20170214
  2. FTORAFUR [Suspect]
     Active Substance: TEGAFUR
     Indication: RECTAL ADENOCARCINOMA
     Dosage: UNK, CYCLIC (D1-14 EVERY 3 WEEKS FOR 6 CYCLES)
     Dates: start: 20151116, end: 20160309
  3. OXALIPLATIN. [Suspect]
     Active Substance: OXALIPLATIN
     Indication: RECTAL ADENOCARCINOMA
     Dosage: 250 MG, CYCLIC (D1, EVERY 3 WEEKS FOR 6 CYCLES)
     Route: 042
     Dates: start: 20151116, end: 20160309
  4. IRINOTECAN HCL [Suspect]
     Active Substance: IRINOTECAN HYDROCHLORIDE
     Indication: RECTAL ADENOCARCINOMA
     Dosage: 600 MG, CYCLIC (D1 EVERY 3 WEEKS FROM THIRD CYCLE FOR 6 CYCLES)
     Route: 042
     Dates: start: 20161007

REACTIONS (5)
  - Vomiting [Recovered/Resolved]
  - Nausea [Recovered/Resolved]
  - Alanine aminotransferase increased [Recovered/Resolved]
  - Aspartate aminotransferase increased [Recovered/Resolved]
  - Toxic neuropathy [Recovered/Resolved]

NARRATIVE: CASE EVENT DATE: 20151215
